FAERS Safety Report 5809253-6 (Version None)
Quarter: 2008Q3

REPORT INFORMATION
  Report Type: 
  Country: None (occurrence: None)
  Receive Date: 20080714
  Receipt Date: 20080707
  Transmission Date: 20090109
  Serious: Yes (Other)
  Sender: FDA-Public Use
  Company Number: GB-BOEHRINGER INGELHEIM GMBH, GERMANY-2008-UK-01344UK

PATIENT
  Age: 74 Year
  Sex: Female
  Weight: 81 kg

DRUGS (6)
  1. PERSANTIN [Suspect]
  2. ASPIRIN [Concomitant]
  3. ATENOLOL [Concomitant]
  4. ATORVASTATIN CALCIUM [Concomitant]
     Indication: MYOCARDIAL ISCHAEMIA
  5. ISOSORBIDE MONONITRATE [Concomitant]
  6. RAMIPRIL [Concomitant]

REACTIONS (3)
  - HEADACHE [None]
  - MYALGIA [None]
  - PAIN [None]
